FAERS Safety Report 21894900 (Version 2)
Quarter: 2023Q1

REPORT INFORMATION
  Report Type: Report from Study
  Country: DE (occurrence: DE)
  Receive Date: 20230122
  Receipt Date: 20230206
  Transmission Date: 20230418
  Serious: Yes (Death, Other)
  Sender: FDA-Public Use
  Company Number: DE-VALIDUS PHARMACEUTICALS LLC-DE-VDP-2023-015915

PATIENT

DRUGS (1)
  1. PENTOXIFYLLINE [Suspect]
     Active Substance: PENTOXIFYLLINE
     Indication: Peripartum cardiomyopathy
     Dosage: 800MG 3X DAILY
     Route: 048
     Dates: start: 20040105, end: 20040429

REACTIONS (1)
  - Cardiac failure [Fatal]
